FAERS Safety Report 25740293 (Version 1)
Quarter: 2025Q3

REPORT INFORMATION
  Report Type: Spontaneous
  Country: US (occurrence: None)
  Receive Date: 20250828
  Receipt Date: 20250828
  Transmission Date: 20251020
  Serious: Yes (Death)
  Sender: FDA-CTU
  Company Number: None

PATIENT
  Age: 26 Year
  Sex: Male
  Weight: 64.01 kg

DRUGS (3)
  1. RYDAPT [Suspect]
     Active Substance: MIDOSTAURIN
     Indication: Acute myeloid leukaemia
     Dosage: FREQUENCY : TWICE A DAY;?
     Route: 048
     Dates: start: 20250814, end: 20250826
  2. DAUNORUBICIN [Suspect]
     Active Substance: DAUNORUBICIN
     Dates: start: 20250814, end: 20250826
  3. CYTARABINE [Suspect]
     Active Substance: CYTARABINE

REACTIONS (4)
  - Pancytopenia [None]
  - Neutropenic colitis [None]
  - Disease complication [None]
  - Organ failure [None]

NARRATIVE: CASE EVENT DATE: 20250826
